FAERS Safety Report 17952870 (Version 1)
Quarter: 2020Q2

REPORT INFORMATION
  Report Type: Spontaneous
  Country: US (occurrence: US)
  Receive Date: 20200627
  Receipt Date: 20200627
  Transmission Date: 20200714
  Serious: No
  Sender: FDA-Public Use
  Company Number: US-ASTRAZENECA-2020SE79293

PATIENT
  Age: 23837 Day
  Sex: Male
  Weight: 88.5 kg

DRUGS (4)
  1. FARXIGA [Concomitant]
     Active Substance: DAPAGLIFLOZIN PROPANEDIOL
     Indication: DIABETES MELLITUS
  2. METFORMIN [Concomitant]
     Active Substance: METFORMIN HYDROCHLORIDE
  3. FEENOFIBRATE [Concomitant]
  4. BYDUREON BCISE [Suspect]
     Active Substance: EXENATIDE
     Indication: DIABETES MELLITUS
     Route: 058
     Dates: start: 201906

REACTIONS (3)
  - Incorrect dose administered by device [Unknown]
  - Injection site extravasation [Unknown]
  - Device defective [Unknown]

NARRATIVE: CASE EVENT DATE: 20200618
